FAERS Safety Report 8085162-X (Version None)
Quarter: 2012Q1

REPORT INFORMATION
  Report Type: 
  Country: None (occurrence: None)
  Receive Date: 20120128
  Receipt Date: 20110321
  Transmission Date: 20120608
  Serious: No
  Sender: FDA-Public Use
  Company Number: US-ABBOTT-11P-163-0713223-00

PATIENT
  Sex: Female
  Weight: 99.88 kg

DRUGS (5)
  1. PREDNISONE TAB [Concomitant]
     Indication: PSORIATIC ARTHROPATHY
  2. ATENOLOL [Concomitant]
     Indication: HYPERTENSION
  3. VITAMIN D [Concomitant]
     Indication: VITAMIN D DEFICIENCY
     Dates: start: 20101201
  4. MULTIPLE VITAMINS [Concomitant]
     Indication: VITAMIN SUPPLEMENTATION
  5. HUMIRA [Suspect]
     Indication: PSORIATIC ARTHROPATHY
     Route: 058
     Dates: start: 20110201

REACTIONS (2)
  - HOT FLUSH [None]
  - HEADACHE [None]
